FAERS Safety Report 8571010-8 (Version None)
Quarter: 2012Q3

REPORT INFORMATION
  Report Type: 
  Country: None (occurrence: None)
  Receive Date: 20120806
  Receipt Date: 20120726
  Transmission Date: 20120928
  Serious: Yes (Other)
  Sender: FDA-Public Use
  Company Number: US-009507513-1207USA011468

PATIENT

DRUGS (3)
  1. COPEGUS [Suspect]
     Dosage: 600-1400MG PER DAY
  2. VICTRELIS [Suspect]
     Dosage: UNK
  3. PEG-INTRON [Suspect]

REACTIONS (2)
  - CARDIOVASCULAR DISORDER [None]
  - ANAEMIA [None]
